FAERS Safety Report 10953263 (Version 3)
Quarter: 2017Q1

REPORT INFORMATION
  Report Type: Spontaneous
  Country: US (occurrence: US)
  Receive Date: 20150325
  Receipt Date: 20170110
  Transmission Date: 20170428
  Serious: No
  Sender: FDA-Public Use
  Company Number: US-PFIZER INC-2015101663

PATIENT
  Age: 81 Year
  Sex: Female

DRUGS (34)
  1. LIDODERM [Concomitant]
     Active Substance: LIDOCAINE
     Indication: BACK PAIN
     Dosage: 5 %, UNK, (APPLY UP TO 3 PATCHES TO THE AFFECTED AREAS AND LEAVE IN PLACE FOR 12 HOURS THEN REMOVE )
     Dates: start: 20131211
  2. LUTEIN-ZEAXANTHIN [Concomitant]
     Indication: MACULAR DEGENERATION
     Dosage: UNK UNK, 1X/DAY, [LUTEIN- 6 MG]/[ZEAXANTHIN -1 MG]
     Route: 048
     Dates: start: 20110307
  3. VITAMIN D3 [Concomitant]
     Active Substance: CHOLECALCIFEROL
     Dosage: 1000 IU, UNK, (W/LUNCH)
  4. ESTER C [Concomitant]
     Dosage: 500 MG, 2X/DAY, (1 W/LUNCH AND 1 AT BEDTIME FOR EYES)
  5. LUTEIN [Concomitant]
     Active Substance: LUTEIN
     Dosage: 20 MG, 1X/DAY, (W/BREAKFAST)
  6. MAGNESIUM OXIDE. [Concomitant]
     Active Substance: MAGNESIUM OXIDE
     Indication: ROUTINE HEALTH MAINTENANCE
     Dosage: 400 MG, 2X/DAY
     Route: 048
     Dates: start: 20110713
  7. METOPROLOL TARTRATE. [Concomitant]
     Active Substance: METOPROLOL TARTRATE
     Indication: ESSENTIAL HYPERTENSION
     Dosage: 12.5 MG, 2X/DAY  (TAKE 0.5 TABLET ), (PUT ME TO SLEEP)
     Route: 048
     Dates: start: 20160401
  8. ATORVASTATIN CALCIUM. [Concomitant]
     Active Substance: ATORVASTATIN CALCIUM
     Indication: TYPE V HYPERLIPIDAEMIA
     Dosage: 5 MG, 1X/DAY
     Route: 048
     Dates: start: 20131202
  9. ATORVASTATIN CALCIUM. [Concomitant]
     Active Substance: ATORVASTATIN CALCIUM
     Indication: BLOOD CHOLESTEROL INCREASED
     Dosage: 7.5 MG, 1X/DAY
  10. LYRICA [Suspect]
     Active Substance: PREGABALIN
     Indication: NEUROPATHY PERIPHERAL
     Dosage: UNK
  11. ASPIRIN 81 [Concomitant]
     Active Substance: ASPIRIN
     Indication: CAROTID ARTERIOSCLEROSIS
     Dosage: 81 MG, DAILY
     Dates: start: 20111011
  12. AZELASTINE HCL [Concomitant]
     Active Substance: AZELASTINE HYDROCHLORIDE
     Indication: SINUSITIS
     Dosage: UNK
  13. CALCIUM CARBONATE AND VITAMIN D [Concomitant]
     Active Substance: CALCIUM CARBONATE\VITAMIN D
     Dosage: 750 MG, 1X/DAY, (WITH 1D3 AND K, 1 W/DINNER)
  14. MAGNESIUM GLYCINATE [Concomitant]
     Active Substance: MAGNESIUM GLYCINATE
     Dosage: 400 MG, 1X/DAY, (1 W/DINNER)
  15. PROBIOTICS [Concomitant]
     Active Substance: PROBIOTICS NOS
     Dosage: UNK UNK, 1X/DAY, (10 BILLION ACTIVE CULTURES, 1 W/LUNCH)
  16. LYRICA [Suspect]
     Active Substance: PREGABALIN
     Dosage: 450 MG, (AT BEDTIME)
  17. BETA CAROTENE [Concomitant]
     Indication: ROUTINE HEALTH MAINTENANCE
     Dosage: 25000 IU, DAILY, (W/LUNCH)
     Route: 048
     Dates: start: 20110307
  18. FLAXSEED [Concomitant]
     Active Substance: FLAX SEED
     Indication: ROUTINE HEALTH MAINTENANCE
     Dosage: 2000 MG, DAILY
     Route: 048
     Dates: start: 20110307
  19. PANTOPRAZOLE SODIUM. [Concomitant]
     Active Substance: PANTOPRAZOLE SODIUM
     Indication: GASTROOESOPHAGEAL REFLUX DISEASE
     Dosage: 40 MG, 1X/DAY, (TAKE 1 TABLET 30 MINUTES BEFORE DINNER)/(BEFORE BREAKFAST DAILY)
     Route: 048
     Dates: start: 20160401
  20. VITAMIN C [Concomitant]
     Active Substance: ASCORBIC ACID
     Indication: ROUTINE HEALTH MAINTENANCE
     Dosage: 500 MG, 1X/DAY, (TAKE 1 TABLET BEDTIME)
     Route: 048
     Dates: start: 20100726
  21. VITAMIN D3 [Concomitant]
     Active Substance: CHOLECALCIFEROL
     Indication: ROUTINE HEALTH MAINTENANCE
     Dosage: 400 IU, 2X/DAY
     Route: 048
     Dates: start: 20100726
  22. DIPHENOXYLATE/ATROPINE [Concomitant]
     Active Substance: ATROPINE\DIPHENOXYLATE
     Indication: DIARRHOEA
     Dosage: UNK (ATROPINE SULFATE 0.025 MG, DIPHENOXYLATE HYDROCHLORIDE 2.5MG)
     Route: 048
     Dates: start: 20111117
  23. ECOTRIN [Concomitant]
     Active Substance: ASPIRIN
     Indication: ANTICOAGULANT THERAPY
     Dosage: 81 MG, UNK, (SAFETY COATED ASPIRIN 1 AT 9:00PM )
  24. ALPHA LIPOIC ACID [Concomitant]
     Active Substance: .ALPHA.-LIPOIC ACID
     Dosage: 600 MG, 2X/DAY, (1 W/ BREAKFAST, . 1 W/DINNER)
  25. FISH OIL OMEGA 3 [Concomitant]
     Dosage: 1000 MG, 1X/DAY, (EPA  AND DHA 1 W/DINNER)
  26. LYRICA [Suspect]
     Active Substance: PREGABALIN
     Dosage: 400 MG, DAILY (2 CAPSULES DAILY)
     Route: 048
     Dates: start: 20150402
  27. LIDODERM [Concomitant]
     Active Substance: LIDOCAINE
     Indication: MYELOPATHY
  28. VITAMIN E [Concomitant]
     Active Substance: .ALPHA.-TOCOPHEROL
     Indication: ROUTINE HEALTH MAINTENANCE
     Dosage: 400 IU, DAILY
     Route: 048
     Dates: start: 20110307
  29. LOSARTAN POTASSIUM. [Concomitant]
     Active Substance: LOSARTAN POTASSIUM
     Indication: ESSENTIAL HYPERTENSION
     Dosage: 50 MG, DAILY
     Route: 048
     Dates: start: 20160718
  30. FLAXSEED [Concomitant]
     Active Substance: FLAX SEED
     Dosage: 1000 MG, 1X/DAY, (1 W/DINNER)
  31. ZEAXANTHIN [Concomitant]
     Active Substance: ZEAXANTHIN
     Dosage: 4 MG, 1X/DAY, (W/BREAKFAST)
  32. ASTELIN [Concomitant]
     Active Substance: AZELASTINE HYDROCHLORIDE
     Indication: SEASONAL ALLERGY
     Dosage: 137 UG, 2X/DAY  (INSERT 2 SQUIRTS IN EACH NOSTRIL IN EACH NOSTRIL )
     Route: 045
     Dates: start: 20110713
  33. CALCIUM [Concomitant]
     Active Substance: CALCIUM
     Indication: ROUTINE HEALTH MAINTENANCE
     Dosage: 750 MG, DAILY
     Route: 048
     Dates: start: 20100301
  34. LEVOTHYROXINE SODIUM. [Concomitant]
     Active Substance: LEVOTHYROXINE SODIUM
     Indication: HYPOTHYROIDISM
     Dosage: 75 UG, DAILY, (30 TO 60 MINUTES BEFORE BREAKFAST)
     Route: 048
     Dates: start: 20100512

REACTIONS (1)
  - Malaise [Unknown]
